FAERS Safety Report 20744720 (Version 1)
Quarter: 2022Q2

REPORT INFORMATION
  Report Type: Spontaneous
  Country: US (occurrence: US)
  Receive Date: 20220425
  Receipt Date: 20220425
  Transmission Date: 20220720
  Serious: Yes (Death, Hospitalization)
  Sender: FDA-Public Use
  Company Number: US-MYLANLABS-2022M1029505

PATIENT
  Age: 48 Year
  Sex: Male

DRUGS (2)
  1. ETOPOSIDE [Suspect]
     Active Substance: ETOPOSIDE
     Indication: Haemophagocytic lymphohistiocytosis
     Dosage: 75 MILLIGRAM/SQ. METER (ON DAY 12)
     Route: 065
  2. DEXAMETHASONE [Concomitant]
     Active Substance: DEXAMETHASONE
     Indication: Haemophagocytic lymphohistiocytosis
     Dosage: 20 MILLIGRAM, QD (ON DAY 12)
     Route: 065

REACTIONS (9)
  - Cardiac arrest [Fatal]
  - Pulseless electrical activity [Fatal]
  - Hyperkalaemia [Fatal]
  - Hyperphosphataemia [Fatal]
  - Hypocalcaemia [Fatal]
  - Hyperuricaemia [Fatal]
  - Shock [Fatal]
  - Tumour lysis syndrome [Fatal]
  - Off label use [Unknown]
